FAERS Safety Report 4965797-0 (Version None)
Quarter: 2006Q2

REPORT INFORMATION
  Report Type: 
  Country: None (occurrence: None)
  Receive Date: 20060407
  Receipt Date: 20060329
  Transmission Date: 20061013
  Serious: Yes (Other)
  Sender: FDA-Public Use
  Company Number: US-JNJFOC-20060307468

PATIENT
  Age: 62 Year
  Sex: Male

DRUGS (2)
  1. REMICADE [Suspect]
     Indication: RHEUMATOID ARTHRITIS
     Route: 042
  2. CELEBREX [Concomitant]

REACTIONS (1)
  - HEPATIC STEATOSIS [None]
